FAERS Safety Report 15447110 (Version 1)
Quarter: 2018Q3

REPORT INFORMATION
  Report Type: Spontaneous
  Country: US (occurrence: US)
  Receive Date: 20180928
  Receipt Date: 20180928
  Transmission Date: 20181010
  Serious: No
  Sender: FDA-Public Use
  Company Number: US-AMGEN-USASP2018046942

PATIENT
  Age: 78 Year
  Sex: Male

DRUGS (1)
  1. PROLIA [Suspect]
     Active Substance: DENOSUMAB
     Indication: BONE LOSS
     Dosage: 60 MG, Q6MO
     Route: 058
     Dates: start: 20151006

REACTIONS (5)
  - Gingival swelling [Recovered/Resolved]
  - Root canal infection [Not Recovered/Not Resolved]
  - Toothache [Recovered/Resolved]
  - Tooth fracture [Unknown]
  - Mouth swelling [Unknown]

NARRATIVE: CASE EVENT DATE: 201804
